FAERS Safety Report 7889072-X (Version None)
Quarter: 2011Q4

REPORT INFORMATION
  Report Type: 
  Country: None (occurrence: None)
  Receive Date: 20111103
  Receipt Date: 20111101
  Transmission Date: 20120403
  Serious: Yes (Other)
  Sender: FDA-Public Use
  Company Number: SE-PFIZER INC-2011266768

PATIENT
  Age: 60 Year
  Sex: Female

DRUGS (4)
  1. LYRICA [Suspect]
     Indication: NERVE INJURY
     Dosage: 150 MG, 2X/DAY
     Dates: start: 20060101
  2. OXYCONTIN [Concomitant]
     Dosage: UNK
  3. LYRICA [Suspect]
     Dosage: 300 MG, 2X/DAY
  4. ACETAMINOPHEN [Concomitant]
     Dosage: UNK

REACTIONS (3)
  - INCONTINENCE [None]
  - PAIN IN EXTREMITY [None]
  - GASTRIC BYPASS [None]
